FAERS Safety Report 6194014-1 (Version None)
Quarter: 2009Q2

REPORT INFORMATION
  Report Type: 
  Country: None (occurrence: None)
  Receive Date: 20090518
  Receipt Date: 20090515
  Transmission Date: 20091009
  Serious: Yes (Death, Other)
  Sender: FDA-Public Use
  Company Number: PHHY2009JP17439

PATIENT
  Age: 68 Year
  Sex: Male

DRUGS (1)
  1. GLEEVEC [Suspect]
     Indication: ERDHEIM-CHESTER DISEASE
     Dosage: 400 MG/DAY
     Route: 048

REACTIONS (6)
  - DISSEMINATED INTRAVASCULAR COAGULATION [None]
  - MUSCLE ABSCESS [None]
  - PANCYTOPENIA [None]
  - RECTAL PERFORATION [None]
  - SEPTIC SHOCK [None]
  - SPLENOMEGALY [None]
